FAERS Safety Report 8380479-3 (Version None)
Quarter: 2012Q2

REPORT INFORMATION
  Report Type: 
  Country: None (occurrence: None)
  Receive Date: 20120523
  Receipt Date: 20120312
  Transmission Date: 20120825
  Serious: Yes (Hospitalization)
  Sender: FDA-Public Use
  Company Number: JP-GLAXOSMITHKLINE-B0789108A

PATIENT
  Sex: Female

DRUGS (6)
  1. DEPAS [Concomitant]
     Indication: DEPRESSION
     Dosage: 1MG PER DAY
     Route: 048
  2. SILECE [Concomitant]
     Indication: DEPRESSION
     Route: 048
     Dates: start: 20120224, end: 20120307
  3. U PAN [Concomitant]
     Indication: DEPRESSION
     Dosage: 4MG PER DAY
     Route: 048
  4. LAMICTAL [Suspect]
     Indication: BIPOLAR DISORDER
     Dosage: 25MG PER DAY
     Route: 048
     Dates: start: 20120224, end: 20120307
  5. AMLODIPINE [Concomitant]
     Indication: HYPERTENSION
     Dosage: 5MG PER DAY
     Route: 048
  6. CYMBALTA [Concomitant]
     Indication: DEPRESSION
     Dosage: 30MG PER DAY
     Route: 048
     Dates: end: 20120307

REACTIONS (32)
  - CONJUNCTIVAL HYPERAEMIA [None]
  - ABNORMAL CLOTTING FACTOR [None]
  - PURPURA [None]
  - BLOOD LACTATE DEHYDROGENASE INCREASED [None]
  - MONOCYTE PERCENTAGE DECREASED [None]
  - DRUG ERUPTION [None]
  - HEPATIC FUNCTION ABNORMAL [None]
  - DERMATITIS [None]
  - PLATELET COUNT DECREASED [None]
  - DRUG-INDUCED LIVER INJURY [None]
  - DISSEMINATED INTRAVASCULAR COAGULATION [None]
  - ERYTHEMA [None]
  - BLOOD BILIRUBIN UNCONJUGATED INCREASED [None]
  - FIBRIN D DIMER INCREASED [None]
  - BILIRUBIN CONJUGATED INCREASED [None]
  - WHITE BLOOD CELL COUNT DECREASED [None]
  - STEVENS-JOHNSON SYNDROME [None]
  - PYREXIA [None]
  - ALANINE AMINOTRANSFERASE INCREASED [None]
  - BLOOD BILIRUBIN INCREASED [None]
  - FIBRIN DEGRADATION PRODUCTS INCREASED [None]
  - C-REACTIVE PROTEIN INCREASED [None]
  - RASH PAPULAR [None]
  - LYMPHOCYTIC INFILTRATION [None]
  - PROTHROMBIN LEVEL DECREASED [None]
  - RASH GENERALISED [None]
  - ASPARTATE AMINOTRANSFERASE INCREASED [None]
  - BLOOD ALKALINE PHOSPHATASE INCREASED [None]
  - GAMMA-GLUTAMYLTRANSFERASE INCREASED [None]
  - NEUTROPHIL PERCENTAGE INCREASED [None]
  - LIP EROSION [None]
  - LYMPHOCYTE PERCENTAGE DECREASED [None]
